FAERS Safety Report 8463285-0 (Version None)
Quarter: 2012Q2

REPORT INFORMATION
  Report Type: 
  Country: None (occurrence: None)
  Receive Date: 20120625
  Receipt Date: 20120625
  Transmission Date: 20120825
  Serious: Yes (Other)
  Sender: FDA-Public Use
  Company Number: ES-BAYER-2012-062177

PATIENT
  Age: 43 Year
  Sex: Female
  Weight: 55 kg

DRUGS (6)
  1. MODAFANIL [Concomitant]
     Route: 048
     Dates: start: 20070101
  2. AMANTADINE HCL [Concomitant]
     Indication: MULTIPLE SCLEROSIS
     Route: 048
     Dates: start: 20070101
  3. BETASERON [Suspect]
     Indication: MULTIPLE SCLEROSIS
     Route: 058
     Dates: start: 19960101
  4. LIORESAL [Concomitant]
     Indication: MUSCLE SPASTICITY
     Dosage: 25 MG, BID
     Route: 048
     Dates: start: 20070101
  5. VESICARE [Concomitant]
     Indication: URINARY INCONTINENCE
     Route: 048
     Dates: start: 20080308
  6. SATIVEX [Concomitant]
     Indication: MUSCLE SPASTICITY
     Route: 055
     Dates: start: 20101201

REACTIONS (2)
  - RAYNAUD'S PHENOMENON [None]
  - VASCULITIS [None]
